FAERS Safety Report 5781952-4 (Version None)
Quarter: 2008Q2

REPORT INFORMATION
  Report Type: 
  Country: None (occurrence: None)
  Receive Date: 20080623
  Receipt Date: 20080620
  Transmission Date: 20081010
  Serious: Yes (Other)
  Sender: FDA-Public Use
  Company Number: B0525936A

PATIENT
  Age: 26 Year
  Sex: Female

DRUGS (2)
  1. AUGMENTIN '125' [Suspect]
     Indication: UPPER RESPIRATORY TRACT INFLAMMATION
     Dosage: 250MG THREE TIMES PER DAY
     Route: 048
     Dates: start: 20080604, end: 20080605
  2. TRANSAMIN [Suspect]
     Indication: UPPER RESPIRATORY TRACT INFLAMMATION
     Dosage: 250MG THREE TIMES PER DAY
     Route: 048
     Dates: start: 20080604, end: 20080604

REACTIONS (3)
  - DRUG ERUPTION [None]
  - ERYTHEMA [None]
  - PRURITUS [None]
